FAERS Safety Report 13743795 (Version 3)
Quarter: 2018Q2

REPORT INFORMATION
  Report Type: Spontaneous
  Country: US (occurrence: US)
  Receive Date: 20170711
  Receipt Date: 20180525
  Transmission Date: 20180711
  Serious: No
  Sender: FDA-Public Use
  Company Number: US-TEVA-787017ACC

PATIENT
  Sex: Female

DRUGS (2)
  1. MORPHINE [Concomitant]
     Active Substance: MORPHINE
     Indication: BREAKTHROUGH PAIN
     Dosage: 60 MILLIGRAM DAILY;
  2. ACTIQ [Suspect]
     Active Substance: FENTANYL CITRATE
     Indication: SPINAL FRACTURE
     Dosage: 1200 MILLIGRAM DAILY;
     Route: 065

REACTIONS (2)
  - Product use in unapproved indication [Unknown]
  - Pain [Unknown]
